FAERS Safety Report 8250158-1 (Version None)
Quarter: 2012Q2

REPORT INFORMATION
  Report Type: 
  Country: None (occurrence: None)
  Receive Date: 20120402
  Receipt Date: 20120323
  Transmission Date: 20120825
  Serious: Yes (Other)
  Sender: FDA-Public Use
  Company Number: CN-JNJFOC-20120311737

PATIENT

DRUGS (6)
  1. THALIDOMIDE [Suspect]
     Dosage: INITIAL DOSE
     Route: 048
  2. DOXORUBICIN HCL [Suspect]
     Indication: MULTIPLE MYELOMA
     Dosage: CONTINUOUS INFUSION OF DAYS 1-4
     Route: 042
  3. ASPIRIN [Concomitant]
     Indication: ANTICOAGULANT THERAPY
     Route: 048
  4. THALIDOMIDE [Suspect]
     Indication: MULTIPLE MYELOMA
     Dosage: MTD 9MAXIMUM TOLERATED DOSE
     Route: 048
  5. DEXAMETHASONE [Suspect]
     Indication: MULTIPLE MYELOMA
     Dosage: ON DAYS 1-4, 9-12 AND 17-20, MONTLY MINIMUM OF 4 CYCLES AND MAXIMUM OF 6 CYCLES
     Route: 048
  6. VINCRISTINE [Suspect]
     Indication: MULTIPLE MYELOMA
     Dosage: CONTINUOUS INFUSION ON DAYS 1-4
     Route: 042

REACTIONS (13)
  - DEEP VEIN THROMBOSIS [None]
  - ANAEMIA [None]
  - UPPER RESPIRATORY TRACT INFECTION [None]
  - VOMITING [None]
  - DIARRHOEA [None]
  - CONSTIPATION [None]
  - NEUTROPENIA [None]
  - FATIGUE [None]
  - PYREXIA [None]
  - MULTIPLE MYELOMA [None]
  - NEUROPATHY PERIPHERAL [None]
  - THROMBOCYTOPENIA [None]
  - HERPES ZOSTER [None]
